FAERS Safety Report 11072616 (Version 2)
Quarter: 2015Q2

REPORT INFORMATION
  Report Type: Spontaneous
  Country: US (occurrence: US)
  Receive Date: 20150427
  Receipt Date: 20150511
  Transmission Date: 20150821
  Serious: Yes (Other)
  Sender: FDA-Public Use
  Company Number: US-LPDUSPRD-20150243

PATIENT
  Age: 68 Year
  Sex: Male

DRUGS (3)
  1. UNSPECIFIED HYPOGLYCAEMIC AGENT [Concomitant]
     Dosage: NOT PROVIDED
     Route: 065
  2. UNSPECIFIED DIURETIC [Concomitant]
     Active Substance: UNSPECIFIED INGREDIENT
     Dosage: NOT PROVIDED
     Route: 065
  3. FUROSEMIDE INJECTION, USP (5702-25) 10 MG/ML [Suspect]
     Active Substance: FUROSEMIDE
     Dosage: NOT PROVIDED
     Route: 065

REACTIONS (1)
  - Pseudoporphyria [Unknown]
